APPROVED DRUG PRODUCT: ZOLEDRONIC ACID
Active Ingredient: ZOLEDRONIC ACID
Strength: EQ 4MG BASE/5ML
Dosage Form/Route: INJECTABLE;INTRAVENOUS
Application: A202923 | Product #001 | TE Code: AP
Applicant: USV PRIVATE LTD
Approved: Sep 4, 2014 | RLD: No | RS: No | Type: RX